FAERS Safety Report 8790038 (Version 1)
Quarter: 2012Q4

REPORT INFORMATION
  Report Type: Report from Study
  Country: JP (occurrence: JP)
  Receive Date: 20120917
  Receipt Date: 20120917
  Transmission Date: 20130627
  Serious: Yes (Other)
  Sender: FDA-Public Use
  Company Number: JP-VERTEX PHARMACEUTICAL INC.-2012-020967

PATIENT
  Age: 64 Year
  Sex: Male

DRUGS (13)
  1. VX-950 [Suspect]
     Indication: HEPATITIS C
     Dosage: 2250 mg, qd
     Route: 048
     Dates: start: 20120705, end: 20120708
  2. VX-950 [Suspect]
     Dosage: 1500 mg, qd
     Route: 048
     Dates: start: 20120709, end: 20120725
  3. VX-950 [Suspect]
     Dosage: 500 mg, qd
     Route: 048
     Dates: start: 20120726
  4. RIBAVIRIN [Suspect]
     Indication: HEPATITIS C
     Dosage: 800 mg, qd
     Route: 048
     Dates: start: 20120705, end: 20120718
  5. RIBAVIRIN [Suspect]
     Dosage: 600 mg, qd
     Route: 048
     Dates: start: 20120719, end: 20120725
  6. RIBAVIRIN [Suspect]
     Dosage: 400 mg, qd
     Route: 048
     Dates: start: 20120726, end: 20120801
  7. RIBAVIRIN [Suspect]
     Dosage: 200 mg, qd
     Route: 048
     Dates: start: 20120802
  8. PEGINTRON                          /01543001/ [Suspect]
     Indication: HEPATITIS C
     Dosage: 1.5 UNK, UNK
     Route: 058
     Dates: start: 20120705, end: 20120712
  9. PEGINTRON                          /01543001/ [Suspect]
     Dosage: 0.4 UNK, UNK
     Route: 058
     Dates: start: 20120802
  10. PEGINTRON                          /01543001/ [Suspect]
     Dosage: 1.5 UNK, UNK
     Route: 058
     Dates: start: 20120719, end: 20120726
  11. NORVASC [Concomitant]
     Dosage: 5 mg, qd
     Route: 048
  12. OLMETEC [Concomitant]
     Dosage: 20 mg, qd
     Route: 048
  13. OMEPRAL /00661201/ [Concomitant]
     Dosage: 20 mg, qd
     Route: 048

REACTIONS (3)
  - Renal disorder [Recovered/Resolved]
  - Anaemia [Not Recovered/Not Resolved]
  - Platelet count decreased [Recovered/Resolved]
